FAERS Safety Report 25587063 (Version 1)
Quarter: 2025Q3

REPORT INFORMATION
  Report Type: Spontaneous
  Country: US (occurrence: US)
  Receive Date: 20250721
  Receipt Date: 20250721
  Transmission Date: 20251021
  Serious: No
  Sender: Phathom Pharmaceuticals
  Company Number: US-PHATHOM PHARMACEUTICALS INC.-2025PHT00791

PATIENT

DRUGS (2)
  1. VOQUEZNA [Suspect]
     Active Substance: VONOPRAZAN FUMARATE
     Indication: Reflux laryngitis
     Route: 048
  2. VOQUEZNA [Suspect]
     Active Substance: VONOPRAZAN FUMARATE
     Indication: Throat irritation

REACTIONS (4)
  - Throat tightness [Unknown]
  - Throat irritation [Unknown]
  - Headache [Recovered/Resolved]
  - Nausea [Recovered/Resolved]
